FAERS Safety Report 16704756 (Version 1)
Quarter: 2019Q3

REPORT INFORMATION
  Report Type: Spontaneous
  Country: US (occurrence: US)
  Receive Date: 20190814
  Receipt Date: 20190814
  Transmission Date: 20191004
  Serious: No
  Sender: FDA-Public Use
  Company Number: US-MANNKIND CORPORATION-2019MK000082

PATIENT
  Sex: Male
  Weight: 59.02 kg

DRUGS (6)
  1. AFREZZA [Suspect]
     Active Substance: INSULIN HUMAN
     Dates: start: 201706
  2. COREG [Concomitant]
     Active Substance: CARVEDILOL
     Indication: CARDIAC DISORDER
     Route: 048
  3. NORVASC [Concomitant]
     Active Substance: AMLODIPINE BESYLATE
     Indication: CARDIAC DISORDER
     Route: 048
  4. AFREZZA [Suspect]
     Active Substance: INSULIN HUMAN
     Indication: TYPE 1 DIABETES MELLITUS
     Dates: start: 201706
  5. LIPITOR [Concomitant]
     Active Substance: ATORVASTATIN CALCIUM
     Indication: BLOOD CHOLESTEROL ABNORMAL
     Route: 048
  6. AFREZZA [Suspect]
     Active Substance: INSULIN HUMAN
     Dates: start: 201706

REACTIONS (1)
  - Pulmonary hypertension [Not Recovered/Not Resolved]
